FAERS Safety Report 15386806 (Version 1)
Quarter: 2018Q3

REPORT INFORMATION
  Report Type: Spontaneous
  Country: RU (occurrence: RU)
  Receive Date: 20180914
  Receipt Date: 20180914
  Transmission Date: 20181010
  Serious: Yes (Hospitalization, Other)
  Sender: FDA-Public Use
  Company Number: RU-BAYER-2018-109859

PATIENT
  Age: 39 Year
  Sex: Female

DRUGS (2)
  1. MIRENA [Suspect]
     Active Substance: LEVONORGESTREL
     Indication: CONTRACEPTION
     Dosage: 20 MCG/24HR, CONT
     Route: 015
     Dates: start: 20170210, end: 20170921
  2. MIRENA [Suspect]
     Active Substance: LEVONORGESTREL
     Indication: ADENOMYOSIS

REACTIONS (7)
  - Oophoritis [Recovered/Resolved]
  - Device issue [None]
  - Genital haemorrhage [Recovered/Resolved]
  - Pelvic adhesions [Recovered/Resolved]
  - Cystitis [Recovered/Resolved]
  - Device dislocation [Recovered/Resolved]
  - Body temperature abnormal [Recovered/Resolved]

NARRATIVE: CASE EVENT DATE: 2017
